FAERS Safety Report 4314077-5 (Version None)
Quarter: 2004Q1

REPORT INFORMATION
  Report Type: 
  Country: None (occurrence: None)
  Receive Date: 20040305
  Receipt Date: 20041112
  Transmission Date: 20041129
  Serious: Yes (Hospitalization)
  Sender: FDA-Public Use
  Company Number: 2004UW00732

PATIENT
  Sex: Female

DRUGS (3)
  1. CRESTOR [Suspect]
     Dosage: 10 MG QD PO
     Route: 048
     Dates: start: 20031101, end: 20031201
  2. CELEBREX [Concomitant]
  3. GLUCOPHAGE [Concomitant]

REACTIONS (2)
  - ABDOMINAL PAIN [None]
  - BACK PAIN [None]
